FAERS Safety Report 10183837 (Version 2)
Quarter: 2014Q3

REPORT INFORMATION
  Report Type: Spontaneous
  Country: JP (occurrence: JP)
  Receive Date: 20140520
  Receipt Date: 20140814
  Transmission Date: 20150326
  Serious: Yes (Other)
  Sender: FDA-Public Use
  Company Number: JP-TEVA-482464ISR

PATIENT
  Age: 69 Year
  Sex: Male

DRUGS (3)
  1. CISPLATIN. [Suspect]
     Active Substance: CISPLATIN
     Indication: OESOPHAGEAL SQUAMOUS CELL CARCINOMA STAGE III
     Dosage: ON DAY 1; 2 COURSES
  2. ADRIACIN [Suspect]
     Active Substance: DOXORUBICIN HYDROCHLORIDE
     Indication: OESOPHAGEAL SQUAMOUS CELL CARCINOMA STAGE III
     Dosage: ON DAY 1; 2 COURSES
  3. 5-FLUOROURACIL [Suspect]
     Active Substance: FLUOROURACIL
     Indication: OESOPHAGEAL SQUAMOUS CELL CARCINOMA STAGE III
     Dosage: DAYS 1-5; 2 COURSES

REACTIONS (8)
  - Renal impairment [Recovered/Resolved]
  - Neutropenia [Unknown]
  - Chyluria [Recovered/Resolved]
  - Haematuria [Recovered/Resolved]
  - Electrolyte imbalance [Recovered/Resolved]
  - Pneumonia aspiration [Unknown]
  - Proteinuria [Recovered/Resolved]
  - Dehydration [Recovered/Resolved]
